FAERS Safety Report 12621518 (Version 1)
Quarter: 2016Q3

REPORT INFORMATION
  Report Type: Spontaneous
  Country: US (occurrence: None)
  Receive Date: 20160803
  Receipt Date: 20160803
  Transmission Date: 20161109
  Serious: Yes (Other)
  Sender: FDA-Public Use
  Company Number: None

PATIENT
  Age: 75 Year
  Sex: Female
  Weight: 74.84 kg

DRUGS (13)
  1. TYLENOL PM [Concomitant]
     Active Substance: ACETAMINOPHEN\DIPHENHYDRAMINE
  2. VITAMIN D3 [Concomitant]
     Active Substance: CHOLECALCIFEROL
  3. VITAMIN B12 [Concomitant]
     Active Substance: CYANOCOBALAMIN
  4. LOSARTAN-HCTZ [Concomitant]
     Active Substance: HYDROCHLOROTHIAZIDE\LOSARTAN
  5. CLONAZAPAM [Concomitant]
     Active Substance: CLONAZEPAM
  6. OXYBUTYNIN CL ER [Concomitant]
     Active Substance: OXYBUTYNIN CHLORIDE
  7. OMEGA 3 FISH OIL [Concomitant]
     Active Substance: FISH OIL\OMEGA-3 FATTY ACIDS
  8. ONE A DAY WOMENS FORMULA VITAMIN [Concomitant]
  9. LEVOFLOXACIN, GENERIC FOR LEVAQUIN AUROBINDO PHARM [Suspect]
     Active Substance: LEVOFLOXACIN
     Indication: INFECTION
     Dosage: 500 MG TAB 10 DAY SUPPLY ONCE DAILY BY MOUTH
     Route: 048
     Dates: start: 20160625, end: 20160628
  10. HYDROCODONE [Concomitant]
     Active Substance: HYDROCODONE
  11. LUMIGAN [Concomitant]
     Active Substance: BIMATOPROST
  12. COQ10 [Concomitant]
     Active Substance: UBIDECARENONE
  13. VITAMIN E [Concomitant]
     Active Substance: .ALPHA.-TOCOPHEROL

REACTIONS (2)
  - Neuropathy peripheral [None]
  - Pain in extremity [None]

NARRATIVE: CASE EVENT DATE: 20160628
